FAERS Safety Report 16256463 (Version 1)
Quarter: 2019Q2

REPORT INFORMATION
  Report Type: Spontaneous
  Country: US (occurrence: US)
  Receive Date: 20190430
  Receipt Date: 20190430
  Transmission Date: 20190711
  Serious: No
  Sender: FDA-Public Use
  Company Number: US-ABBVIE-18S-163-2346211-00

PATIENT
  Sex: Female

DRUGS (1)
  1. CREON [Suspect]
     Active Substance: PANCRELIPASE AMYLASE\PANCRELIPASE LIPASE\PANCRELIPASE PROTEASE
     Indication: PRODUCT USED FOR UNKNOWN INDICATION
     Route: 048

REACTIONS (9)
  - Stress [Unknown]
  - Irritability [Unknown]
  - Anger [Unknown]
  - Disturbance in attention [Unknown]
  - Memory impairment [Unknown]
  - Social avoidant behaviour [Unknown]
  - General physical health deterioration [Unknown]
  - Malaise [Unknown]
  - Abdominal pain upper [Unknown]
